FAERS Safety Report 26041606 (Version 1)
Quarter: 2025Q4

REPORT INFORMATION
  Report Type: Spontaneous
  Country: UA (occurrence: None)
  Receive Date: 20251113
  Receipt Date: 20251113
  Transmission Date: 20260118
  Serious: Yes (Death)
  Sender: AMERICAN REGENT
  Company Number: UA-AMERICAN REGENT INC-2025004053

PATIENT
  Age: 69 Year
  Sex: Male

DRUGS (1)
  1. FERINJECT [Suspect]
     Active Substance: FERRIC CARBOXYMALTOSE
     Indication: Anaemia
     Dosage: 1000 MILLIGRAM, TOT (SINGLE) ADMINISTERED INTO THE CUBITAL VEIN
     Dates: start: 20250925, end: 20250925

REACTIONS (3)
  - Malignant neoplasm progression [Fatal]
  - Diarrhoea [Recovered/Resolved]
  - Pyrexia [Recovered/Resolved]

NARRATIVE: CASE EVENT DATE: 20250925
